FAERS Safety Report 7701925-1 (Version None)
Quarter: 2011Q3

REPORT INFORMATION
  Report Type: 
  Country: None (occurrence: None)
  Receive Date: 20110822
  Receipt Date: 20110816
  Transmission Date: 20111222
  Serious: Yes (Other)
  Sender: FDA-Public Use
  Company Number: US-PFIZER INC-2011188960

PATIENT
  Sex: Female
  Weight: 63.492 kg

DRUGS (2)
  1. GEODON [Suspect]
     Dosage: UNK
  2. GEODON [Suspect]
     Indication: SCHIZOPHRENIA
     Dosage: 40 MG, 2X/DAY

REACTIONS (3)
  - MYOCARDIAL INFARCTION [None]
  - BLOOD GLUCOSE FLUCTUATION [None]
  - RENAL FAILURE [None]
